FAERS Safety Report 8506911 (Version 4)
Quarter: 2013Q1

REPORT INFORMATION
  Report Type: Spontaneous
  Country: US (occurrence: US)
  Receive Date: 20120412
  Receipt Date: 20130211
  Transmission Date: 20140127
  Serious: Yes (Life-Threatening)
  Sender: FDA-Public Use
  Company Number: US-ASTRAZENECA-2011SE12829

PATIENT
  Age: 58 Year
  Sex: Male

DRUGS (5)
  1. NEXIUM [Suspect]
     Route: 048
     Dates: start: 2002
  2. NEXIUM [Suspect]
     Dosage: 1 DF, TWICE DAILY
     Route: 048
  3. NEXIUM [Suspect]
     Dosage: 4 DF, TWICE DAILY
     Route: 048
  4. ASPIRIN THERAPY [Concomitant]
  5. PLAVIX [Concomitant]

REACTIONS (10)
  - Blood pressure decreased [Unknown]
  - Bronchitis [Unknown]
  - Chest pain [Unknown]
  - Gastric disorder [Unknown]
  - Abdominal pain upper [Unknown]
  - Diarrhoea [Unknown]
  - Nephrolithiasis [Unknown]
  - Malaise [Unknown]
  - Drug dose omission [Unknown]
  - Intentional drug misuse [Unknown]
